FAERS Safety Report 7455956-X (Version None)
Quarter: 2011Q2

REPORT INFORMATION
  Report Type: 
  Country: None (occurrence: None)
  Receive Date: 20110503
  Receipt Date: 20110427
  Transmission Date: 20111010
  Serious: Yes (Hospitalization, Other)
  Sender: FDA-Public Use
  Company Number: BE-PFIZER INC-2011080750

PATIENT
  Age: 53 Year
  Sex: Female
  Weight: 81 kg

DRUGS (5)
  1. LYRICA [Suspect]
     Indication: FIBROMYALGIA
     Dosage: 150 MG, 1X/DAY
     Dates: start: 20110101
  2. LYRICA [Suspect]
     Indication: CHRONIC FATIGUE SYNDROME
     Dosage: 75 MG, 1X/DAY
     Dates: end: 20110101
  3. NEXIUM [Concomitant]
     Dosage: UNK
     Route: 048
     Dates: start: 20101101
  4. LYRICA [Suspect]
     Indication: NEURALGIA
     Dosage: 225 MG, 1X/DAY
     Route: 048
     Dates: start: 20060912
  5. REDOMEX [Concomitant]
     Dosage: 25 MG, 1X/DAY
     Route: 048
     Dates: start: 20110125

REACTIONS (9)
  - FATIGUE [None]
  - EPILEPSY [None]
  - MALAISE [None]
  - FALL [None]
  - GASTRIC DISORDER [None]
  - LOSS OF CONSCIOUSNESS [None]
  - INSOMNIA [None]
  - PAIN [None]
  - AMNESIA [None]
